FAERS Safety Report 8813573 (Version 1)
Quarter: 2012Q4

REPORT INFORMATION
  Report Type: 
  Country: US (occurrence: US)
  Receive Date: 20120927
  Receipt Date: 20120927
  Transmission Date: 20130627
  Serious: No
  Sender: FDA-Public Use
  Company Number: US-AMGEN-USASP2012039968

PATIENT
  Age: 83 Year
  Sex: Female
  Weight: 50.79 kg

DRUGS (2)
  1. PROLIA [Suspect]
     Indication: OSTEOPOROSIS POSTMENOPAUSAL
     Dosage: 60 mg, q6mo
     Route: 058
     Dates: start: 20111109
  2. PROLIA [Suspect]
     Dosage: 60 mg, q6mo
     Route: 058
     Dates: start: 20120615

REACTIONS (3)
  - Influenza like illness [Recovered/Resolved]
  - Malaise [Recovered/Resolved]
  - Balance disorder [Recovered/Resolved]
